FAERS Safety Report 19239748 (Version 1)
Quarter: 2021Q2

REPORT INFORMATION
  Report Type: Spontaneous
  Country: US (occurrence: US)
  Receive Date: 20210510
  Receipt Date: 20210510
  Transmission Date: 20210717
  Serious: Yes (Other)
  Sender: FDA-Public Use
  Company Number: US-SA-2021SA140327

PATIENT
  Age: 71 Year
  Sex: Female

DRUGS (1)
  1. TOUJEO [Suspect]
     Active Substance: INSULIN GLARGINE
     Indication: DIABETES MELLITUS
     Dosage: 8 IU, QD
     Route: 065
     Dates: start: 202103

REACTIONS (7)
  - Diabetes mellitus inadequate control [Unknown]
  - Restlessness [Unknown]
  - Intentional product misuse [Unknown]
  - Drug ineffective [Unknown]
  - Skin swelling [Unknown]
  - Pruritus [Unknown]
  - Drug intolerance [Unknown]
